FAERS Safety Report 23411293 (Version 1)
Quarter: 2024Q1

REPORT INFORMATION
  Report Type: Spontaneous
  Country: US (occurrence: US)
  Receive Date: 20240117
  Receipt Date: 20240117
  Transmission Date: 20240410
  Serious: No
  Sender: FDA-Public Use
  Company Number: US-FERRINGPH-2023FE05547

PATIENT
  Sex: Female

DRUGS (1)
  1. CLENPIQ [Suspect]
     Active Substance: ANHYDROUS CITRIC ACID\MAGNESIUM OXIDE\SODIUM PICOSULFATE
     Indication: Bowel preparation
     Dosage: UNK, 1 BOTTLE
     Route: 065
     Dates: start: 20231005, end: 20231005

REACTIONS (6)
  - Malaise [Unknown]
  - Frequent bowel movements [Unknown]
  - Dysuria [Unknown]
  - Pain [Unknown]
  - Constipation [Unknown]
  - Diarrhoea [Unknown]

NARRATIVE: CASE EVENT DATE: 20231005
